FAERS Safety Report 20794297 (Version 1)
Quarter: 2022Q2

REPORT INFORMATION
  Report Type: Spontaneous
  Country: US (occurrence: US)
  Receive Date: 20220506
  Receipt Date: 20220506
  Transmission Date: 20220721
  Serious: Yes (Hospitalization)
  Sender: FDA-Public Use
  Company Number: US-MYLANLABS-2022M1032112

PATIENT
  Sex: Male

DRUGS (3)
  1. METHADONE [Suspect]
     Active Substance: METHADONE HYDROCHLORIDE
     Indication: Drug use disorder
     Dosage: 115 MILLIGRAM, QD
     Route: 064
  2. NIFEDIPINE [Suspect]
     Active Substance: NIFEDIPINE
     Indication: Hypertension
     Dosage: UNK, EXTENDED RELEASE DAILY, 1 DAY
     Route: 064
  3. TERBUTALINE [Suspect]
     Active Substance: TERBUTALINE
     Indication: Tocolysis
     Dosage: UNK
     Route: 064

REACTIONS (3)
  - Drug withdrawal syndrome neonatal [Recovering/Resolving]
  - Foetal heart rate indeterminate [Recovering/Resolving]
  - Foetal exposure during pregnancy [Recovering/Resolving]
